FAERS Safety Report 4282884-3 (Version None)
Quarter: 2004Q1

REPORT INFORMATION
  Report Type: 
  Country: None (occurrence: None)
  Receive Date: 20040130
  Receipt Date: 20030908
  Transmission Date: 20041129
  Serious: Yes (Other)
  Sender: FDA-Public Use
  Company Number: US-BRISTOL-MYERS SQUIBB COMPANY-12376414

PATIENT
  Age: 71 Year
  Sex: Female

DRUGS (4)
  1. SERZONE [Suspect]
     Route: 048
     Dates: start: 20011201, end: 20020102
  2. BUSPAR [Suspect]
     Dates: start: 20011201, end: 20020102
  3. TAMOXIFEN [Suspect]
     Dosage: AS OF JANUARY 2002 WAS TAKING ^} 2 YEARS^
     Dates: end: 20020102
  4. GLUCOTROL [Suspect]
     Dates: start: 20011201, end: 20020102

REACTIONS (1)
  - HEPATITIS [None]
